FAERS Safety Report 11642990 (Version 5)
Quarter: 2016Q1

REPORT INFORMATION
  Report Type: Report from Study
  Country: CA (occurrence: CA)
  Receive Date: 20151020
  Receipt Date: 20160111
  Transmission Date: 20160525
  Serious: Yes (Other)
  Sender: FDA-Public Use
  Company Number: CA-ROCHE-1642247

PATIENT
  Sex: Female

DRUGS (8)
  1. PREDNISONE. [Concomitant]
     Active Substance: PREDNISONE
  2. ACTONEL [Concomitant]
     Active Substance: RISEDRONATE SODIUM
  3. LYRICA [Concomitant]
     Active Substance: PREGABALIN
  4. RITUXAN [Suspect]
     Active Substance: RITUXIMAB
     Route: 042
     Dates: start: 20150925, end: 201509
  5. LORAZEPAM. [Concomitant]
     Active Substance: LORAZEPAM
  6. RITUXAN [Suspect]
     Active Substance: RITUXIMAB
     Indication: RHEUMATOID ARTHRITIS
     Route: 042
     Dates: start: 20150318
  7. LOSEC [Concomitant]
     Active Substance: OMEPRAZOLE
  8. TYLENOL [Concomitant]
     Active Substance: ACETAMINOPHEN
     Dosage: EXTRA STRENGTH
     Route: 065

REACTIONS (2)
  - Headache [Recovered/Resolved]
  - Asthenia [Not Recovered/Not Resolved]
